FAERS Safety Report 4466086-3 (Version None)
Quarter: 2004Q3

REPORT INFORMATION
  Report Type: 
  Country: None (occurrence: None)
  Receive Date: 20040930
  Receipt Date: 20040915
  Transmission Date: 20050211
  Serious: Yes (Hospitalization)
  Sender: FDA-Public Use
  Company Number: 2004-UK-00908UK

PATIENT
  Age: 54 Year
  Sex: Male

DRUGS (8)
  1. IPRATROPIUM (00015 / 0043R) (IPRATROPIUM BROMIDE) (NR) (IPRATROPIUM-BR [Suspect]
     Indication: CHRONIC OBSTRUCTIVE AIRWAYS DISEASE
     Dosage: 40 MCG ; IH
     Route: 055
     Dates: start: 20040823, end: 20040823
  2. AMLODIPINE [Concomitant]
  3. AMOXICILLIN [Concomitant]
  4. CIPROFLOXACIN [Concomitant]
  5. METOCLOPRAMIDE [Concomitant]
  6. TELITHROMYCIN (TELITHROMYCIN) [Concomitant]
  7. CHLORPHENIRAMINE TAB [Concomitant]
  8. CEFUROXIME [Concomitant]

REACTIONS (2)
  - RASH GENERALISED [None]
  - WHEEZING [None]
